FAERS Safety Report 5451751-1 (Version None)
Quarter: 2007Q3

REPORT INFORMATION
  Report Type: 
  Country: None (occurrence: None)
  Receive Date: 20070912
  Receipt Date: 20070608
  Transmission Date: 20080115
  Serious: Yes (Death)
  Sender: FDA-Public Use
  Company Number: US020258

PATIENT
  Age: 67 Year
  Sex: Male

DRUGS (2)
  1. ACTIQ [Suspect]
     Indication: BREAKTHROUGH PAIN
     Dosage: 200 UG BUCCAL
     Route: 002
  2. FENTANYL [Concomitant]

REACTIONS (2)
  - MEDICATION ERROR [None]
  - NAUSEA [None]
